FAERS Safety Report 6312548-3 (Version None)
Quarter: 2009Q3

REPORT INFORMATION
  Report Type: 
  Country: None (occurrence: None)
  Receive Date: 20090813
  Receipt Date: 20090806
  Transmission Date: 20100115
  Serious: Yes (Other)
  Sender: FDA-Public Use
  Company Number: CERZ-1000800

PATIENT
  Age: 22 Year
  Sex: Female
  Weight: 69.2 kg

DRUGS (2)
  1. CEREZYME [Suspect]
     Indication: GAUCHER'S DISEASE
     Dosage: 4000 U, Q4W, INTRAVENOUS, 4000 U, Q2W, INTRAVENOUS
     Route: 042
     Dates: start: 20000914, end: 20090701
  2. CEREZYME [Suspect]
     Indication: GAUCHER'S DISEASE
     Dosage: 4000 U, Q4W, INTRAVENOUS, 4000 U, Q2W, INTRAVENOUS
     Route: 042
     Dates: start: 20090716

REACTIONS (1)
  - CONVULSION [None]
